FAERS Safety Report 8000116 (Version 2)
Quarter: 2014Q2

REPORT INFORMATION
  Report Type: Spontaneous
  Country: US (occurrence: US)
  Receive Date: 20110621
  Receipt Date: 20140404
  Transmission Date: 20141212
  Serious: No
  Sender: FDA-Public Use
  Company Number: US-ASTRAZENECA-2010SE47088

PATIENT
  Age: 72 Year
  Sex: Female
  Weight: 74.8 kg

DRUGS (12)
  1. ENTOCORT EC [Suspect]
     Indication: COLITIS MICROSCOPIC
     Route: 048
     Dates: start: 200910, end: 201007
  2. ENTOCORT EC [Suspect]
     Indication: COLITIS MICROSCOPIC
     Route: 048
     Dates: start: 2010
  3. ENTOCORT EC [Suspect]
     Indication: COLITIS MICROSCOPIC
     Dosage: DAILY
     Route: 048
  4. ENTOCORT EC [Suspect]
     Indication: COLITIS MICROSCOPIC
     Route: 048
     Dates: start: 2009, end: 201308
  5. ENTOCORT EC [Suspect]
     Indication: COLITIS MICROSCOPIC
     Route: 048
     Dates: start: 201308, end: 201402
  6. ENTOCORT EC [Suspect]
     Indication: COLITIS MICROSCOPIC
     Route: 048
     Dates: start: 20140219
  7. HUMALOG [Concomitant]
  8. SYNTHROID [Concomitant]
  9. RAMIPRIL [Concomitant]
  10. LOW DOSE ASPIRIN [Concomitant]
  11. SIMVASTATIN [Concomitant]
  12. ACIPHEX [Concomitant]

REACTIONS (5)
  - Abdominal pain [Unknown]
  - Diarrhoea [Unknown]
  - Condition aggravated [Unknown]
  - Intentional product misuse [Unknown]
  - Off label use [Unknown]
